FAERS Safety Report 6993650-X (Version None)
Quarter: 2010Q3

REPORT INFORMATION
  Report Type: 
  Country: None (occurrence: None)
  Receive Date: 20100917
  Receipt Date: 20080118
  Transmission Date: 20110219
  Serious: Yes (Other)
  Sender: FDA-Public Use
  Company Number: US-ASTRAZENECA-2007UW12480

PATIENT
  Age: 10389 Day
  Sex: Male
  Weight: 95.7 kg

DRUGS (7)
  1. SEROQUEL [Suspect]
     Indication: BIPOLAR DISORDER
     Route: 048
     Dates: start: 20000401, end: 20061001
  2. SEROQUEL [Suspect]
     Indication: DEPRESSION
     Route: 048
     Dates: start: 20000401, end: 20061001
  3. SEROQUEL [Suspect]
     Route: 048
     Dates: start: 20020115
  4. SEROQUEL [Suspect]
     Route: 048
     Dates: start: 20020115
  5. DEPAKOTE [Concomitant]
     Dosage: 1500MG-2000MG
     Dates: start: 20010329
  6. ANTABUSE [Concomitant]
     Route: 048
     Dates: start: 20020115
  7. FLEXERIL [Concomitant]
     Route: 048
     Dates: start: 20010115

REACTIONS (3)
  - DIABETES MELLITUS [None]
  - GLUCOSE TOLERANCE IMPAIRED [None]
  - TYPE 1 DIABETES MELLITUS [None]
